FAERS Safety Report 11597148 (Version 2)
Quarter: 2015Q4

REPORT INFORMATION
  Report Type: Spontaneous
  Country: US (occurrence: US)
  Receive Date: 20151006
  Receipt Date: 20151028
  Transmission Date: 20160304
  Serious: Yes (Hospitalization)
  Sender: FDA-Public Use
  Company Number: US-AMGEN-USASP2015103062

PATIENT
  Age: 77 Year
  Sex: Female
  Weight: 57.46 kg

DRUGS (1)
  1. PROLIA [Suspect]
     Active Substance: DENOSUMAB
     Indication: OSTEOPOROSIS POSTMENOPAUSAL
     Dosage: 60 MG, Q6MO
     Route: 058
     Dates: start: 20150805, end: 20151002

REACTIONS (3)
  - Urinary tract infection [Recovered/Resolved]
  - Blood pressure decreased [Recovered/Resolved]
  - Emphysema [Recovered/Resolved]

NARRATIVE: CASE EVENT DATE: 20150812
